FAERS Safety Report 13400586 (Version 1)
Quarter: 2017Q2

REPORT INFORMATION
  Report Type: Spontaneous
  Country: AT (occurrence: AT)
  Receive Date: 20170404
  Receipt Date: 20170404
  Transmission Date: 20170830
  Serious: Yes (Other)
  Sender: FDA-Public Use
  Company Number: AT-ALKABELLO-2017AA000983

PATIENT
  Age: 41 Year
  Sex: Female
  Weight: 53 kg

DRUGS (3)
  1. EUTHYROX [Concomitant]
     Active Substance: LEVOTHYROXINE SODIUM
     Indication: HYPOTHYROIDISM
     Route: 048
  2. ACARIZAX 12 SQ-HDM LYOPHILISAT ZUM EINNEHMEN [Suspect]
     Active Substance: DERMATOPHAGOIDES FARINAE\DERMATOPHAGOIDES PTERONYSSINUS
     Indication: MITE ALLERGY
     Dosage: DOSE UNIT:12 SQ-HOUSE DUST MITE
     Dates: start: 20170307, end: 20170308
  3. PIROXICAM. [Concomitant]
     Active Substance: PIROXICAM

REACTIONS (4)
  - Oral discomfort [Recovered/Resolved]
  - Angioedema [Recovered/Resolved]
  - Respiratory tract irritation [Recovered/Resolved]
  - Dyspnoea [Recovered/Resolved]

NARRATIVE: CASE EVENT DATE: 20170307
